APPROVED DRUG PRODUCT: BUTALBITAL, ASPIRIN, CAFFEINE, AND CODEINE PHOSPHATE
Active Ingredient: ASPIRIN; BUTALBITAL; CAFFEINE; CODEINE PHOSPHATE
Strength: 325MG;50MG;40MG;30MG
Dosage Form/Route: CAPSULE;ORAL
Application: A074359 | Product #001
Applicant: WATSON LABORATORIES INC
Approved: Aug 31, 1995 | RLD: No | RS: No | Type: DISCN